FAERS Safety Report 6135107-4 (Version None)
Quarter: 2009Q1

REPORT INFORMATION
  Report Type: 
  Country: None (occurrence: None)
  Receive Date: 20090327
  Receipt Date: 20090316
  Transmission Date: 20090719
  Serious: Yes (Hospitalization)
  Sender: FDA-Public Use
  Company Number: IT-ROCHE-618248

PATIENT
  Sex: Female

DRUGS (3)
  1. PEGASYS [Suspect]
     Indication: HEPATITIS CHRONIC ACTIVE
     Route: 058
     Dates: start: 20090205, end: 20090224
  2. REBETOL [Suspect]
     Indication: HEPATITIS CHRONIC ACTIVE
     Route: 048
     Dates: start: 20090205, end: 20090224
  3. FAMVIR [Suspect]
     Indication: HERPES SIMPLEX
     Route: 048
     Dates: start: 20090205, end: 20090224

REACTIONS (4)
  - HEAD INJURY [None]
  - SKULL FRACTURED BASE [None]
  - SUBARACHNOID HAEMORRHAGE [None]
  - SYNCOPE [None]
